FAERS Safety Report 17580862 (Version 1)
Quarter: 2020Q1

REPORT INFORMATION
  Report Type: Spontaneous
  Country: GB (occurrence: GB)
  Receive Date: 20200325
  Receipt Date: 20200325
  Transmission Date: 20200409
  Serious: Yes (Other)
  Sender: FDA-Public Use
  Company Number: GB-MYLANLABS-2020M1030381

PATIENT
  Age: 84 Year
  Sex: Female
  Weight: 63 kg

DRUGS (14)
  1. CALCIUM CARBONATE. [Concomitant]
     Active Substance: CALCIUM CARBONATE
     Dosage: 2 DOSAGE FORM, QD
     Dates: start: 20160930, end: 20191112
  2. LANSOPRAZOLE. [Concomitant]
     Active Substance: LANSOPRAZOLE
     Dosage: EACH MORNING
     Dates: start: 20191112, end: 20191114
  3. RAMIPRIL. [Concomitant]
     Active Substance: RAMIPRIL
     Dosage: 1 DOSAGE FORM, QD
     Dates: start: 20160930
  4. RANITIDINE. [Concomitant]
     Active Substance: RANITIDINE
     Dosage: 2 DOSAGE FORM, QD
     Dates: start: 20191009, end: 20191112
  5. ALENDRONIC ACID [Concomitant]
     Active Substance: ALENDRONIC ACID
     Dosage: 1 DOSAGE FORM, QW
     Dates: start: 20160930
  6. COCODAMOL [Concomitant]
     Active Substance: ACETAMINOPHEN\CODEINE PHOSPHATE
     Dosage: 1 -2 CAPS FOUR TIMES A DAY
     Dates: start: 20191111
  7. DOUBLEBASE [Concomitant]
     Active Substance: ISOPROPYL MYRISTATE\PARAFFIN
     Dosage: UNK, PRN
     Dates: start: 20191016
  8. AMITRIPTYLINE HYDROCHLORIDE. [Concomitant]
     Active Substance: AMITRIPTYLINE HYDROCHLORIDE
     Dosage: AT NIGHT
     Dates: start: 20160930
  9. PREDNISOLONE. [Concomitant]
     Active Substance: PREDNISOLONE
     Dosage: 3 IN THE MORNING (WITH 5MG TABLET TO TOTAL 8MG DAILY DOSE)
     Dates: start: 20190207
  10. SITAGLIPTIN [Concomitant]
     Active Substance: SITAGLIPTIN
     Dosage: 1 DOSAGE FORM, QD
     Dates: start: 20190207
  11. GABAPENTIN. [Suspect]
     Active Substance: GABAPENTIN
     Indication: PRODUCT USED FOR UNKNOWN INDICATION
     Dosage: 300 MILLIGRAM, QD
     Dates: start: 20200107
  12. ACCRETE D3 [Concomitant]
     Active Substance: CALCIUM CARBONATE\CHOLECALCIFEROL
     Dosage: 2 DOSAGE FORM, QD
     Dates: start: 20191112
  13. CLOPIDOGREL [Concomitant]
     Active Substance: CLOPIDOGREL BISULFATE
     Dosage: EACH MORNING
     Dates: start: 20190909
  14. PANTOPRAZOLE [Concomitant]
     Active Substance: PANTOPRAZOLE
     Dosage: EACH MORNING
     Dates: start: 20191114

REACTIONS (2)
  - Somnolence [Unknown]
  - Hallucinations, mixed [Recovering/Resolving]

NARRATIVE: CASE EVENT DATE: 20200114
